FAERS Safety Report 5580150-7 (Version None)
Quarter: 2007Q4

REPORT INFORMATION
  Report Type: 
  Country: None (occurrence: None)
  Receive Date: 20071227
  Receipt Date: 20071227
  Transmission Date: 20080405
  Serious: Yes (Other)
  Sender: FDA-Public Use
  Company Number: None

PATIENT
  Sex: Female
  Weight: 76.6 kg

DRUGS (5)
  1. CARBOPLATIN [Suspect]
     Indication: FALLOPIAN TUBE CANCER
     Dosage: 737 MG, IV Q 3 WEEKS
     Route: 042
     Dates: start: 20070904
  2. PACLITAXEL [Suspect]
     Indication: FALLOPIAN TUBE CANCER
     Dosage: 300 MG, IV Q 3 WEEKS
     Route: 042
     Dates: start: 20070904
  3. DASATINIB 50 MG. TABS (BRISTOL-MYERS SQUIBB) [Suspect]
     Indication: FALLOPIAN TUBE CANCER
     Dosage: 100 MG. P.O. DAILY
     Route: 048
     Dates: start: 20070904, end: 20070916
  4. ONDANSETRON [Concomitant]
  5. MIRALAX [Concomitant]

REACTIONS (3)
  - HAEMATOTOXICITY [None]
  - NEUTROPENIA [None]
  - THROMBOCYTOPENIA [None]
